FAERS Safety Report 8902878 (Version 4)
Quarter: 2012Q4

REPORT INFORMATION
  Report Type: 
  Country: US (occurrence: US)
  Receive Date: 20121112
  Receipt Date: 20121231
  Transmission Date: 20130627
  Serious: Yes (Hospitalization)
  Sender: FDA-Public Use
  Company Number: US-BIOGENIDEC-2012BI050001

PATIENT
  Age: 63 Year
  Sex: Male

DRUGS (2)
  1. AVONEX [Suspect]
     Indication: MULTIPLE SCLEROSIS
     Route: 030
     Dates: start: 19980601, end: 20040129
  2. AVONEX [Suspect]
     Indication: MULTIPLE SCLEROSIS
     Route: 030
     Dates: start: 20040213, end: 201210

REACTIONS (11)
  - Varices oesophageal [Unknown]
  - Liver disorder [Unknown]
  - Feeling cold [Recovered/Resolved]
  - Coma [Recovered/Resolved]
  - Asthenia [Recovered/Resolved]
  - Convulsion [Recovered/Resolved]
  - Hyperhidrosis [Recovered/Resolved]
  - Haemoglobin decreased [Recovered/Resolved]
  - Multiple sclerosis relapse [Recovered/Resolved]
  - Oesophageal ulcer [Not Recovered/Not Resolved]
  - Liver function test abnormal [Recovered/Resolved]
